FAERS Safety Report 8480739-1 (Version None)
Quarter: 2012Q2

REPORT INFORMATION
  Report Type: 
  Country: None (occurrence: None)
  Receive Date: 20120618
  Receipt Date: 20120608
  Transmission Date: 20120825
  Serious: Yes (Hospitalization)
  Sender: FDA-Public Use
  Company Number: DSA_57871_2012

PATIENT

DRUGS (3)
  1. FLUOROURACIL [Suspect]
     Indication: HEAD AND NECK CANCER
     Dosage: 600-700 MG/M2
  2. CISPLATIN [Suspect]
     Indication: HEAD AND NECK CANCER
     Dosage: 50-70 MG/M2 INTRAVENOUS BOLUS
     Route: 040
  3. DOCETAXEL [Suspect]
     Indication: HEAD AND NECK CANCER
     Dosage: (DF)

REACTIONS (1)
  - FEBRILE NEUTROPENIA [None]
